FAERS Safety Report 23713146 (Version 1)
Quarter: 2024Q2

REPORT INFORMATION
  Report Type: Spontaneous
  Country: CN (occurrence: None)
  Receive Date: 20240405
  Receipt Date: 20240405
  Transmission Date: 20240716
  Serious: Yes (Hospitalization)
  Sender: FDA-Public Use
  Company Number: 2024A080127

PATIENT
  Age: 62 Year
  Sex: Male
  Weight: 50 kg

DRUGS (1)
  1. BUDESONIDE [Suspect]
     Active Substance: BUDESONIDE
     Indication: Respiratory failure
     Route: 055
     Dates: start: 20211206, end: 20211214

REACTIONS (1)
  - Fungal infection [Recovering/Resolving]

NARRATIVE: CASE EVENT DATE: 20211214
